FAERS Safety Report 13784084 (Version 1)
Quarter: 2017Q3

REPORT INFORMATION
  Report Type: Spontaneous
  Country: FR (occurrence: FR)
  Receive Date: 20170724
  Receipt Date: 20170724
  Transmission Date: 20171127
  Serious: Yes (Hospitalization)
  Sender: FDA-Public Use
  Company Number: FR-PFIZER INC-605399

PATIENT
  Age: 60 Year
  Sex: Female

DRUGS (14)
  1. DROLEPTAN [Suspect]
     Active Substance: DROPERIDOL
     Indication: ANAESTHESIA PROCEDURE
     Dosage: 1.25 MG, UNK
     Route: 042
     Dates: start: 20100510, end: 20100511
  2. NORMACOL /00086101/ [Suspect]
     Active Substance: SULFAMETHOXAZOLE\TRIMETHOPRIM
     Indication: PREMEDICATION
     Dosage: UNK
     Route: 054
     Dates: start: 20100509, end: 20100509
  3. KETAMINE PANPHARMA [Suspect]
     Active Substance: KETAMINE
     Indication: ANAESTHESIA PROCEDURE
     Dosage: UNK
     Route: 042
     Dates: start: 20100510, end: 20100511
  4. CACIT D3 [Concomitant]
     Active Substance: CALCIUM\CHOLECALCIFEROL
     Indication: PRODUCT USED FOR UNKNOWN INDICATION
  5. ATRACURIUM BESILATE [Suspect]
     Active Substance: ATRACURIUM BESYLATE
     Indication: ANAESTHESIA PROCEDURE
     Dosage: 75 MG, UNK
     Route: 042
     Dates: start: 20100510, end: 20100510
  6. HYTACAND [Concomitant]
     Active Substance: CANDESARTAN CILEXETIL\HYDROCHLOROTHIAZIDE
     Indication: PRODUCT USED FOR UNKNOWN INDICATION
     Dosage: 1 DF, UNK
  7. LOVENOX [Concomitant]
     Active Substance: ENOXAPARIN SODIUM
     Indication: PREMEDICATION
     Dosage: 0.4 ML, UNK
     Dates: start: 20100509, end: 20100510
  8. BETADINE [Suspect]
     Active Substance: POVIDONE-IODINE
     Indication: PREOPERATIVE CARE
     Dosage: UNK
     Route: 003
     Dates: start: 20100509, end: 20100510
  9. NEURONTIN [Suspect]
     Active Substance: GABAPENTIN
     Indication: PREMEDICATION
     Dosage: 900 MG ON THE DAY BEFORE THE SURGER Y, 600 MG 2 HOURS BEFORE THE SURGER Y AND 300 MG THE DAY AFTER
     Route: 048
     Dates: start: 20100509, end: 20100511
  10. AUGMENTIN [Suspect]
     Active Substance: AMOXICILLIN\CLAVULANATE POTASSIUM
     Indication: SURGERY
     Dosage: 4 MG, UNK
     Route: 042
     Dates: start: 20100510, end: 20100510
  11. PROPOFOL FRESENIUS [Suspect]
     Active Substance: PROPOFOL
     Indication: ANAESTHESIA PROCEDURE
     Dosage: 3120 MG, UNK
     Route: 042
     Dates: start: 20100510, end: 20100510
  12. ULTIVA [Suspect]
     Active Substance: REMIFENTANIL HYDROCHLORIDE
     Indication: ANAESTHESIA PROCEDURE
     Dosage: 2.27 MG, UNK
     Route: 042
     Dates: start: 20100510, end: 20100510
  13. LACTATED RINGERS [Concomitant]
     Active Substance: CALCIUM CHLORIDE\POTASSIUM CHLORIDE\SODIUM CHLORIDE\SODIUM LACTATE
     Indication: PRODUCT USED FOR UNKNOWN INDICATION
     Dosage: 1.5 L, UNK
  14. SALINE /00075401/ [Concomitant]
     Active Substance: SODIUM CHLORIDE
     Indication: PRODUCT USED FOR UNKNOWN INDICATION

REACTIONS (3)
  - Oliguria [Recovered/Resolved]
  - Acute kidney injury [Recovered/Resolved]
  - Post procedural haematuria [Recovered/Resolved]

NARRATIVE: CASE EVENT DATE: 20100510
